FAERS Safety Report 4638186-6 (Version None)
Quarter: 2005Q2

REPORT INFORMATION
  Report Type: 
  Country: None (occurrence: None)
  Receive Date: 20050418
  Receipt Date: 20050404
  Transmission Date: 20051028
  Serious: Yes (Death)
  Sender: FDA-Public Use
  Company Number: SUSI-2005-00270

PATIENT
  Sex: Female

DRUGS (4)
  1. ADDERALL XR 10 [Suspect]
     Dosage: 20 MG, 1 X/DAY:QD, UNK
  2. COCAINE(COCAINE) [Suspect]
  3. HEROIN              (DIAMORPHINE) [Suspect]
  4. CELEXA [Concomitant]

REACTIONS (1)
  - DRUG ABUSER [None]
